FAERS Safety Report 4976388-X (Version None)
Quarter: 2006Q2

REPORT INFORMATION
  Report Type: 
  Country: None (occurrence: None)
  Receive Date: 20060412
  Receipt Date: 20060328
  Transmission Date: 20061013
  Serious: Yes (Hospitalization, Other)
  Sender: FDA-Public Use
  Company Number: 2006-140353-NL

PATIENT
  Age: 37 Year
  Sex: Female

DRUGS (2)
  1. MARVELON [Suspect]
     Indication: MENORRHAGIA
     Dosage: DF ORAL
     Route: 048
  2. DANAZOL [Concomitant]

REACTIONS (2)
  - ARTERIAL THROMBOSIS [None]
  - MYOCARDIAL INFARCTION [None]
